FAERS Safety Report 6283244-6 (Version None)
Quarter: 2009Q3

REPORT INFORMATION
  Report Type: 
  Country: None (occurrence: None)
  Receive Date: 20090722
  Receipt Date: 20090722
  Transmission Date: 20100115
  Serious: Yes (Other)
  Sender: FDA-Public Use
  Company Number: None

PATIENT
  Sex: Female

DRUGS (8)
  1. CARISPRODOL 350 MG. ? MANUF. LABEL NOT AVAILABLE [Suspect]
     Indication: FIBROMYALGIA
     Dosage: 350 MG ONCE BID P.O.
     Route: 048
     Dates: start: 20061101, end: 20090601
  2. DAW ULTRAM [Concomitant]
  3. DAW VICODIN ES [Concomitant]
  4. TRAZODONE [Concomitant]
  5. MOBIC [Concomitant]
  6. PRILOSEC [Concomitant]
  7. COZAAR [Concomitant]
  8. HYDROCHLOROTHIAZIDE [Concomitant]

REACTIONS (2)
  - PRURITUS [None]
  - RASH [None]
